FAERS Safety Report 4340944-2 (Version None)
Quarter: 2004Q2

REPORT INFORMATION
  Report Type: 
  Country: None (occurrence: None)
  Receive Date: 20040413
  Receipt Date: 20040330
  Transmission Date: 20050107
  Serious: Yes (Death)
  Sender: FDA-Public Use
  Company Number: US072123

PATIENT
  Age: 56 Year
  Sex: Male

DRUGS (8)
  1. ENBREL [Suspect]
     Indication: RHEUMATOID ARTHRITIS
     Dosage: 25 MG, 1 IN 1 DAYS, SC
     Route: 058
     Dates: start: 20031014
  2. NITRAZEPAM [Concomitant]
  3. AMITRIPTYLINE HCL [Concomitant]
  4. CELECOXIB [Concomitant]
  5. METOCLOPRAMIDE HYDROCHLORIDE [Concomitant]
  6. OXYCONTIN [Concomitant]
  7. CARBAMAZEPINE [Concomitant]
  8. UNSPECIFIED MEDICATION [Concomitant]

REACTIONS (2)
  - ACUTE MYOCARDIAL INFARCTION [None]
  - CORONARY ARTERY OCCLUSION [None]
